FAERS Safety Report 8352722-8 (Version None)
Quarter: 2012Q2

REPORT INFORMATION
  Report Type: 
  Country: None (occurrence: None)
  Receive Date: 20120509
  Receipt Date: 20120503
  Transmission Date: 20120825
  Serious: Yes (Other)
  Sender: FDA-Public Use
  Company Number: 2012SP023574

PATIENT

DRUGS (2)
  1. CARMUSTINE [Suspect]
     Indication: BRAIN NEOPLASM
  2. TEMODAL [Suspect]
     Indication: BRAIN NEOPLASM

REACTIONS (1)
  - ILL-DEFINED DISORDER [None]
